FAERS Safety Report 5653715-1 (Version None)
Quarter: 2008Q1

REPORT INFORMATION
  Report Type: 
  Country: None (occurrence: None)
  Receive Date: 20080204
  Receipt Date: 20070515
  Transmission Date: 20080703
  Serious: Yes (Other)
  Sender: FDA-Public Use
  Company Number: PHEH2007US02127

PATIENT
  Age: 17 Year
  Sex: Female
  Weight: 49.9 kg

DRUGS (1)
  1. RITALIN [Suspect]
     Indication: ATTENTION DEFICIT/HYPERACTIVITY DISORDER
     Dosage: 25 MG, QD, ORAL
     Route: 048
     Dates: start: 20040601, end: 20060401

REACTIONS (5)
  - DEHYDRATION [None]
  - FEELING HOT [None]
  - SYNCOPE [None]
  - TACHYCARDIA [None]
  - WEIGHT DECREASED [None]
